FAERS Safety Report 5165652-X (Version None)
Quarter: 2006Q4

REPORT INFORMATION
  Report Type: 
  Country: None (occurrence: None)
  Receive Date: 20061124
  Receipt Date: 20061113
  Transmission Date: 20070319
  Serious: Yes (Hospitalization)
  Sender: FDA-Public Use
  Company Number: 2006143180

PATIENT
  Age: 71 Year
  Sex: Male
  Weight: 76.8 kg

DRUGS (1)
  1. SUTENT [Suspect]
     Indication: RENAL CELL CARCINOMA STAGE UNSPECIFIED
     Dosage: 37.5 MG (37.5 MG, DAILY - 4 WEEKS ON), ORAL
     Route: 048
     Dates: start: 20060301

REACTIONS (6)
  - DIARRHOEA [None]
  - HYPOTENSION [None]
  - RASH [None]
  - SKIN EXFOLIATION [None]
  - SKIN LESION [None]
  - STAPHYLOCOCCAL BACTERAEMIA [None]
